FAERS Safety Report 23517479 (Version 1)
Quarter: 2024Q1

REPORT INFORMATION
  Report Type: Spontaneous
  Country: US (occurrence: US)
  Receive Date: 20240213
  Receipt Date: 20240213
  Transmission Date: 20240410
  Serious: Yes (Other)
  Sender: FDA-Public Use
  Company Number: PR #6110

PATIENT
  Age: 47 Year
  Sex: Male

DRUGS (4)
  1. LEVETIRACETAM [Suspect]
     Active Substance: LEVETIRACETAM
     Indication: Epilepsy
     Dosage: UNK
     Route: 065
  2. CLONAZEPAM [Suspect]
     Active Substance: CLONAZEPAM
     Indication: Epilepsy
  3. LAMOTRIGINE [Suspect]
     Active Substance: LAMOTRIGINE
     Indication: Epilepsy
  4. TIAGABINE [Suspect]
     Active Substance: TIAGABINE
     Indication: Epilepsy

REACTIONS (3)
  - Mitochondrial DNA mutation [Unknown]
  - Creatine deficiency syndrome [Unknown]
  - Drug ineffective [Unknown]
